FAERS Safety Report 20158539 (Version 1)
Quarter: 2021Q4

REPORT INFORMATION
  Report Type: Report from Study
  Country: DE (occurrence: DE)
  Receive Date: 20211207
  Receipt Date: 20211207
  Transmission Date: 20220303
  Serious: Yes (Other)
  Sender: FDA-Public Use
  Company Number: DE-ABBVIE-21K-062-4092271-00

PATIENT
  Age: 48 Year
  Sex: Female
  Weight: 64.5 kg

DRUGS (36)
  1. RINVOQ [Suspect]
     Active Substance: UPADACITINIB
     Indication: Rheumatoid arthritis
     Route: 048
     Dates: start: 20210506, end: 202109
  2. RINVOQ [Suspect]
     Active Substance: UPADACITINIB
     Indication: Psoriatic arthropathy
     Route: 048
     Dates: start: 20210922, end: 20211006
  3. HUMIRA [Suspect]
     Active Substance: ADALIMUMAB
     Indication: Product used for unknown indication
     Dosage: IN COMBINATION WITH ARAVA
     Route: 058
     Dates: start: 200412, end: 200504
  4. HUMIRA [Suspect]
     Active Substance: ADALIMUMAB
     Route: 058
     Dates: start: 200705
  5. HUMIRA [Suspect]
     Active Substance: ADALIMUMAB
     Dosage: IN COMBINATION WITH INTRAMUSCULARLY ADMINISTERED GOLD
     Route: 058
     Dates: start: 2007, end: 20070619
  6. PREDNISONE [Concomitant]
     Active Substance: PREDNISONE
     Indication: Product used for unknown indication
     Dates: start: 20180725, end: 2021
  7. PREDNISONE [Concomitant]
     Active Substance: PREDNISONE
     Route: 048
     Dates: start: 2021
  8. CHOLECALCIFEROL [Concomitant]
     Active Substance: CHOLECALCIFEROL
     Indication: Steroid therapy
     Route: 048
     Dates: start: 20111212
  9. CHOLECALCIFEROL [Concomitant]
     Active Substance: CHOLECALCIFEROL
     Indication: Vitamin D deficiency
  10. IBUPROFEN [Concomitant]
     Active Substance: IBUPROFEN
     Indication: Rheumatic disorder
     Dosage: IF REQUIRED
     Route: 048
     Dates: start: 20141222
  11. MONTELUKAST [Concomitant]
     Active Substance: MONTELUKAST SODIUM
     Indication: Product used for unknown indication
     Route: 048
     Dates: start: 20140422
  12. PULMELIA [Concomitant]
     Indication: Asthma
     Route: 055
     Dates: start: 20200220
  13. METHOTREXATE [Concomitant]
     Active Substance: METHOTREXATE
     Indication: Product used for unknown indication
     Dates: start: 200202
  14. METHOTREXATE [Concomitant]
     Active Substance: METHOTREXATE
     Dates: start: 200305, end: 2003
  15. METHOTREXATE [Concomitant]
     Active Substance: METHOTREXATE
     Dosage: IN COMBINATION WITH ENBREL
     Dates: start: 200308, end: 200310
  16. METHOTREXATE [Concomitant]
     Active Substance: METHOTREXATE
     Dosage: COMBINATION THERAPY WITH ARAVA
     Dates: start: 200311
  17. ENBREL [Concomitant]
     Active Substance: ETANERCEPT
     Indication: Product used for unknown indication
     Dosage: IN COMBINATION WITH MTX (METHOTREXATE)
     Dates: start: 200308, end: 200310
  18. ARAVA [Concomitant]
     Active Substance: LEFLUNOMIDE
     Indication: Product used for unknown indication
     Dates: start: 200202
  19. ARAVA [Concomitant]
     Active Substance: LEFLUNOMIDE
     Dosage: IN COMBINATION WITH MTX (METHOTREXATE)
     Dates: start: 200311
  20. ARAVA [Concomitant]
     Active Substance: LEFLUNOMIDE
     Dosage: IN COMBINATION WITH CICLOSPORIN
     Dates: start: 200405, end: 200407
  21. ARAVA [Concomitant]
     Active Substance: LEFLUNOMIDE
     Dosage: IN COMBINATION WITH HUMIRA
     Dates: start: 200412, end: 200504
  22. GOLD [Concomitant]
     Active Substance: GOLD
     Indication: Product used for unknown indication
     Dosage: IN COMBINATION WITH HUMIRA
     Dates: start: 2007, end: 20070619
  23. AZATHIOPRINE [Concomitant]
     Active Substance: AZATHIOPRINE
     Indication: Product used for unknown indication
     Dates: start: 200709
  24. RITUXIMAB [Concomitant]
     Active Substance: RITUXIMAB
     Indication: Product used for unknown indication
     Dosage: FIRST COURSE
     Dates: start: 2008, end: 2008
  25. RITUXIMAB [Concomitant]
     Active Substance: RITUXIMAB
     Dosage: SECOND COURSE
     Dates: start: 2008
  26. RITUXIMAB [Concomitant]
     Active Substance: RITUXIMAB
     Dosage: ROM 3-14 COURSES
     Dates: end: 20160523
  27. COSENTYX [Concomitant]
     Active Substance: SECUKINUMAB
     Indication: Product used for unknown indication
     Dates: start: 20160913
  28. COSENTYX [Concomitant]
     Active Substance: SECUKINUMAB
     Dates: start: 20170901
  29. COSENTYX [Concomitant]
     Active Substance: SECUKINUMAB
     Dates: start: 201812
  30. HYDROXYCHLOROQUINE [Concomitant]
     Active Substance: HYDROXYCHLOROQUINE
     Indication: Product used for unknown indication
     Dates: start: 20170126, end: 20170701
  31. ORENCIA [Concomitant]
     Active Substance: ABATACEPT
     Indication: Product used for unknown indication
     Route: 058
     Dates: start: 20180125, end: 20190820
  32. XELJANZ [Concomitant]
     Active Substance: TOFACITINIB CITRATE
     Indication: Product used for unknown indication
     Dates: start: 20190830, end: 20210506
  33. CYCLOSPORINE [Concomitant]
     Active Substance: CYCLOSPORINE
     Indication: Product used for unknown indication
     Dosage: COMBINATION THERAPY WITH ARAVA
     Dates: start: 200405, end: 200407
  34. VITAMIN B12 [Concomitant]
     Active Substance: CYANOCOBALAMIN
     Indication: Vitamin supplementation
  35. MIRTAZAPINE [Concomitant]
     Active Substance: MIRTAZAPINE
     Indication: Pain
     Dosage: 1 1 AS REQUIRED
  36. MIRTAZAPINE [Concomitant]
     Active Substance: MIRTAZAPINE
     Indication: Sleep disorder

REACTIONS (5)
  - Skin papilloma [Not Recovered/Not Resolved]
  - Oral pain [Not Recovered/Not Resolved]
  - Dyspnoea exertional [Unknown]
  - Arrhythmia [Unknown]
  - Tachycardia [Unknown]

NARRATIVE: CASE EVENT DATE: 20170701
